FAERS Safety Report 9919793 (Version 1)
Quarter: 2014Q1

REPORT INFORMATION
  Report Type: Spontaneous
  Country: FR (occurrence: FR)
  Receive Date: 20140224
  Receipt Date: 20140224
  Transmission Date: 20141002
  Serious: Yes (Other)
  Sender: FDA-Public Use
  Company Number: FR-GLAXOSMITHKLINE-B0971373A

PATIENT
  Age: 84 Year
  Sex: Female

DRUGS (9)
  1. SORIATANE [Suspect]
     Indication: PSORIASIS
     Dosage: 25MG PER DAY
     Route: 048
     Dates: start: 201306, end: 20130920
  2. OROCAL VIT D3 [Concomitant]
  3. PIASCLEDINE [Concomitant]
  4. EBIXA [Concomitant]
  5. KARDEGIC [Concomitant]
  6. PARACETAMOL [Concomitant]
  7. DAIVOBET [Concomitant]
  8. DIPROSONE [Concomitant]
  9. LEVOTHYROX [Concomitant]

REACTIONS (2)
  - Headache [Recovered/Resolved]
  - Arteritis [Recovered/Resolved]
